FAERS Safety Report 4439037-5 (Version None)
Quarter: 2004Q3

REPORT INFORMATION
  Report Type: 
  Country: None (occurrence: None)
  Receive Date: 20040830
  Receipt Date: 20040823
  Transmission Date: 20050211
  Serious: Yes (Hospitalization, Other)
  Sender: FDA-Public Use
  Company Number: 2004-08-0889

PATIENT
  Age: 36 Year
  Sex: Female

DRUGS (2)
  1. CELESTONE SOLUSPAN [Suspect]
     Indication: ARTHRALGIA
     Dosage: 1ML
     Dates: start: 20000101, end: 20000101
  2. XYLOCAINE [Concomitant]

REACTIONS (3)
  - DRUG HYPERSENSITIVITY [None]
  - POST PROCEDURAL COMPLICATION [None]
  - REACTION TO DRUG EXCIPIENT [None]
